FAERS Safety Report 4490243-3 (Version None)
Quarter: 2004Q4

REPORT INFORMATION
  Report Type: 
  Country: None (occurrence: None)
  Receive Date: 20041028
  Receipt Date: 20041026
  Transmission Date: 20050328
  Serious: No
  Sender: FDA-Public Use
  Company Number: TPA2004A01132

PATIENT
  Age: 55 Year
  Sex: Male
  Weight: 102.0593 kg

DRUGS (11)
  1. ACTOS [Suspect]
     Indication: DIABETES MELLITUS
     Dosage: 15 MG, 1 IN 1D, PER ORAL
     Route: 048
     Dates: start: 20000929
  2. LIPITOR [Concomitant]
  3. NEXIUM [Concomitant]
  4. GLUCOTROL XL [Concomitant]
  5. ASPIRIN [Concomitant]
  6. LOPID (GEMFIBROZIL ) (600 MILLIGRAM) [Concomitant]
  7. VALIUM [Concomitant]
  8. GLUCOTROL [Concomitant]
  9. LORCET-HD [Concomitant]
  10. CELEBREX [Concomitant]
  11. QUININE (QUININE SULFATE) [Concomitant]

REACTIONS (1)
  - SKIN CANCER [None]
